FAERS Safety Report 6508000-2 (Version None)
Quarter: 2009Q4

REPORT INFORMATION
  Report Type: 
  Country: None (occurrence: None)
  Receive Date: 20091210
  Receipt Date: 20090415
  Transmission Date: 20100525
  Serious: Yes (Hospitalization)
  Sender: FDA-Public Use
  Company Number: CIP09000781

PATIENT
  Age: 65 Year
  Sex: Female

DRUGS (6)
  1. ACTONEL [Suspect]
     Dosage: 150 MG ONE ONLY, ORAL
     Route: 048
     Dates: start: 20090301, end: 20090301
  2. ACIDOPHILUS (LACTOBACILLUS ACIDOPHILUS) [Concomitant]
  3. DAILY VITAMINS (VITAMINS NOS) [Concomitant]
  4. CRESTOR [Concomitant]
  5. LEXAPRO [Concomitant]
  6. EVISTA [Concomitant]

REACTIONS (5)
  - BURNING SENSATION [None]
  - CHEST DISCOMFORT [None]
  - CHEST PAIN [None]
  - INFLAMMATION [None]
  - THROAT IRRITATION [None]
